FAERS Safety Report 7194192-1 (Version None)
Quarter: 2010Q4

REPORT INFORMATION
  Report Type: 
  Country: None (occurrence: None)
  Receive Date: 20101223
  Receipt Date: 20101213
  Transmission Date: 20110411
  Serious: Yes (Other)
  Sender: FDA-Public Use
  Company Number: BR-AMGEN-BRASP2010008527

PATIENT

DRUGS (14)
  1. ENBREL [Suspect]
     Indication: RHEUMATOID ARTHRITIS
     Dosage: 50 MG, QWK
     Route: 058
     Dates: start: 20100614
  2. CYCLOSPORINE [Concomitant]
     Indication: RHEUMATOID ARTHRITIS
     Dosage: 5 UNK, UNK
  3. CYCLOSPORINE [Concomitant]
     Dosage: UNK
  4. CYCLOSPORINE [Concomitant]
     Dosage: 5 TABLETS PER DAY
  5. INSULIN [Concomitant]
     Indication: TYPE 2 DIABETES MELLITUS
     Dosage: 28 IU, BID
  6. PURAN T4 [Concomitant]
     Indication: THYROID DISORDER
  7. PURAN T4 [Concomitant]
     Indication: HYPOTHYROIDISM
  8. ENALAPRIL MALEATE [Concomitant]
     Indication: BLOOD PRESSURE INCREASED
     Dosage: 10 MG, UNK
  9. ENALAPRIL MALEATE [Concomitant]
     Indication: HYPERTENSION
     Dosage: 10 MG, UNK
  10. OMEPRAZOLE [Concomitant]
     Indication: GASTRIC DISORDER
  11. ASPIRIN [Concomitant]
     Indication: THROMBOSIS PROPHYLAXIS
     Dosage: 100 MG, UNK
  12. ASPIRIN [Concomitant]
     Dosage: 100 MG, UNK
  13. LAMIVUDINE [Concomitant]
     Indication: HEPATITIS
     Dosage: 40 UNK, UNK
  14. SIMVASTATIN [Concomitant]
     Indication: CARDIAC DISORDER
     Dosage: 40 MG, UNK

REACTIONS (5)
  - ANAEMIA [None]
  - BLOOD CREATININE INCREASED [None]
  - BLOOD UREA INCREASED [None]
  - RED BLOOD CELL SEDIMENTATION RATE INCREASED [None]
  - WEIGHT DECREASED [None]
